FAERS Safety Report 10231349 (Version 2)
Quarter: 2014Q2

REPORT INFORMATION
  Report Type: Spontaneous
  Country: US (occurrence: US)
  Receive Date: 20140611
  Receipt Date: 20140611
  Transmission Date: 20141212
  Serious: Yes (Other)
  Sender: FDA-Public Use
  Company Number: US-TEVA-485780USA

PATIENT
  Age: 59 Year
  Sex: Male

DRUGS (2)
  1. COPAXONE 40MG [Suspect]
     Indication: MULTIPLE SCLEROSIS
     Dates: start: 2014
  2. COPAXONE 40MG [Suspect]
     Dates: start: 20130116, end: 2014

REACTIONS (1)
  - Multiple sclerosis relapse [Recovered/Resolved]
